FAERS Safety Report 13562766 (Version 1)
Quarter: 2017Q2

REPORT INFORMATION
  Report Type: Spontaneous
  Country: US (occurrence: US)
  Receive Date: 20170518
  Receipt Date: 20170518
  Transmission Date: 20170830
  Serious: Yes (Hospitalization)
  Sender: FDA-Public Use
  Company Number: None

PATIENT
  Age: 69 Year
  Sex: Male

DRUGS (5)
  1. RAPAMUNE [Concomitant]
     Active Substance: SIROLIMUS
  2. PREDNISONE. [Concomitant]
     Active Substance: PREDNISONE
  3. ZYTIGA [Suspect]
     Active Substance: ABIRATERONE ACETATE
     Indication: PROSTATE CANCER
     Dosage: FOUR 250MG TABLETS DAILY ORALLY
     Route: 048
     Dates: start: 20170323
  4. CENTRUM [Concomitant]
     Active Substance: VITAMINS
  5. COLISTEMETH [Concomitant]

REACTIONS (2)
  - Drug dose omission [None]
  - Gastrointestinal haemorrhage [None]
